FAERS Safety Report 9521032 (Version 1)
Quarter: 2013Q1

REPORT INFORMATION
  Report Type: Spontaneous
  Country: US (occurrence: None)
  Receive Date: 20130305
  Receipt Date: 20130305
  Transmission Date: 20140127
  Serious: Yes (Hospitalization, Other)
  Sender: FDA-Public Use
  Company Number: 163-21880-12030131

PATIENT
  Age: 54 Year
  Sex: Male

DRUGS (3)
  1. REVLIMID (LENALIDOMIDE) (CAPSULES) [Suspect]
     Indication: CHRONIC LYMPHOCYTIC LEUKAEMIA
     Dosage: 10 MG, DAILY, PO
     Route: 048
     Dates: start: 201002
  2. WARFARIN (WARFARIN) (UNKNOWN) [Concomitant]
  3. ASPIRIN (ACETYLSALICYLIC ACID) (UNKNOWN) (ACETYLSALICYLIC ACID) [Concomitant]

REACTIONS (6)
  - Transient ischaemic attack [None]
  - Lymph node abscess [None]
  - Tumour flare [None]
  - Lymphocyte count increased [None]
  - Urticaria [None]
  - Red blood cell count decreased [None]
